FAERS Safety Report 6160680 (Version 2)
Quarter: 2015Q2

REPORT INFORMATION
  Report Type: Spontaneous
  Country: US (occurrence: US)
  Receive Date: 20060731
  Receipt Date: 20150525
  Transmission Date: 20150821
  Serious: Yes (Hospitalization)
  Sender: FDA-Public Use
  Company Number: US-JNJFOC-20060504556

PATIENT
  Age: 27 Year
  Sex: Male
  Weight: 73.03 kg

DRUGS (1)
  1. RISPERDAL [Suspect]
     Active Substance: RISPERIDONE
     Indication: SCHIZOPHRENIA

REACTIONS (5)
  - Tremor [Unknown]
  - Insomnia [Unknown]
  - Akathisia [Unknown]
  - Weight increased [Unknown]
  - Diabetes mellitus [Unknown]

NARRATIVE: CASE EVENT DATE: 20030220
